FAERS Safety Report 11848362 (Version 1)
Quarter: 2015Q4

REPORT INFORMATION
  Report Type: Spontaneous
  Country: US (occurrence: US)
  Receive Date: 20151217
  Receipt Date: 20151217
  Transmission Date: 20160305
  Serious: No
  Sender: FDA-Public Use
  Company Number: US-HOSPIRA-2815165

PATIENT
  Sex: Male

DRUGS (3)
  1. IMIPENEM AND CILASTATIN [Suspect]
     Active Substance: CILASTATIN SODIUM\IMIPENEM
     Indication: ADVERSE EVENT
     Dosage: NOT REPORTED
     Route: 041
     Dates: start: 20150327
  2. IMIPENEM AND CILASTATIN [Suspect]
     Active Substance: CILASTATIN SODIUM\IMIPENEM
     Indication: ADVERSE EVENT
     Dosage: NOT REPORTED
     Route: 041
     Dates: start: 20150327
  3. SODIUM CHLORIDE. [Suspect]
     Active Substance: SODIUM CHLORIDE
     Indication: MEDICATION DILUTION
     Dosage: NOT REPORTED
     Route: 041
     Dates: start: 20150327

REACTIONS (5)
  - No adverse event [None]
  - Poor quality drug administered [Unknown]
  - Product deposit [Unknown]
  - Liquid product physical issue [Unknown]
  - Product colour issue [Unknown]

NARRATIVE: CASE EVENT DATE: 20150327
